FAERS Safety Report 9698705 (Version 1)
Quarter: 2013Q4

REPORT INFORMATION
  Report Type: Spontaneous
  Country: CA (occurrence: None)
  Receive Date: 20131118
  Receipt Date: 20131118
  Transmission Date: 20140711
  Serious: Yes (Other)
  Sender: FDA-Public Use
  Company Number: SYM-2013-12761

PATIENT
  Age: 74 Year
  Sex: Female
  Weight: 58.97 kg

DRUGS (4)
  1. ZYCLARA [Suspect]
     Indication: PRODUCT USED FOR UNKNOWN INDICATION
     Route: 061
  2. ASA (ACETYLSALICYLIC ACID) (ACETYLSALICYLIC ACID) [Concomitant]
  3. ATENOLOL BP (ATENOLOL) (TABLET) (ATENOLOL) [Concomitant]
  4. SIMVASTATIN (SIMVASTATIN) (TABLET) (SIMVASTATIN) [Concomitant]

REACTIONS (5)
  - Cheilitis [None]
  - Lip blister [None]
  - Lip swelling [None]
  - Oral discomfort [None]
  - Paraesthesia oral [None]
